FAERS Safety Report 16173778 (Version 1)
Quarter: 2019Q2

REPORT INFORMATION
  Report Type: Spontaneous
  Country: US (occurrence: US)
  Receive Date: 20190306
  Receipt Date: 20190306
  Transmission Date: 20190711
  Serious: No
  Sender: FDA-Public Use
  Company Number: None

PATIENT
  Age: 81 Year
  Sex: Female

DRUGS (4)
  1. LETROZOLE TAB 2.5MG [Suspect]
     Active Substance: LETROZOLE
     Indication: BREAST CANCER
     Route: 048
     Dates: start: 201711
  2. ZOMETA [Concomitant]
     Active Substance: ZOLEDRONIC ACID
  3. IBRANCE [Concomitant]
     Active Substance: PALBOCICLIB
  4. DIAZEPAM. [Concomitant]
     Active Substance: DIAZEPAM

REACTIONS (1)
  - Inappropriate schedule of product administration [None]

NARRATIVE: CASE EVENT DATE: 20180101
